FAERS Safety Report 5041256-4 (Version None)
Quarter: 2006Q2

REPORT INFORMATION
  Report Type: 
  Country: None (occurrence: None)
  Receive Date: 20060626
  Receipt Date: 20060615
  Transmission Date: 20061013
  Serious: Yes (Other)
  Sender: FDA-Public Use
  Company Number: 2006052481

PATIENT
  Age: 61 Year
  Sex: Male
  Weight: 86.1834 kg

DRUGS (2)
  1. BENADRYL [Suspect]
     Indication: RHINORRHOEA
     Dosage: ONE KAPSEAL 1-2 TIMES A DAY, ORAL
     Route: 048
     Dates: start: 20060401
  2. MULTIVITAMINS W/MINERALS (MINERALS NOS, VITAMINS NOS) [Concomitant]
     Indication: NASOPHARYNGITIS
     Dosage: ONE DAILY, ORAL
     Route: 048
     Dates: start: 20060403, end: 20060415

REACTIONS (1)
  - RASH [None]
